FAERS Safety Report 20926796 (Version 1)
Quarter: 2022Q2

REPORT INFORMATION
  Report Type: Spontaneous
  Country: US (occurrence: None)
  Receive Date: 20220607
  Receipt Date: 20220607
  Transmission Date: 20220721
  Serious: No
  Sender: FDA-Public Use
  Company Number: None

PATIENT
  Age: 43 Year
  Sex: Female
  Weight: 49.5 kg

DRUGS (6)
  1. LEVOXYL [Suspect]
     Active Substance: LEVOTHYROXINE SODIUM
     Indication: Hypothyroidism
     Dosage: OTHER QUANTITY : 1 TABLET(S);?FREQUENCY : DAILY;?
     Route: 048
  2. ASPIRIN [Concomitant]
     Active Substance: ASPIRIN
  3. COENZYME Q10 [Concomitant]
     Active Substance: DIETARY SUPPLEMENT\UBIDECARENONE
  4. ASCORBIC ACID\TOCOPHEROL [Concomitant]
     Active Substance: ASCORBIC ACID\TOCOPHEROL
  5. VITAMINS [Concomitant]
     Active Substance: VITAMINS
  6. Diramin D [Concomitant]

REACTIONS (3)
  - Heart rate increased [None]
  - Blood pressure increased [None]
  - Diarrhoea [None]

NARRATIVE: CASE EVENT DATE: 20220512
